FAERS Safety Report 14033663 (Version 22)
Quarter: 2022Q4

REPORT INFORMATION
  Report Type: Spontaneous
  Country: PT (occurrence: PT)
  Receive Date: 20171003
  Receipt Date: 20221130
  Transmission Date: 20230113
  Serious: Yes (Life-Threatening, Hospitalization, Other)
  Sender: FDA-Public Use
  Company Number: PT-AUROBINDO-AUR-APL-2017-41180

PATIENT
  Age: 23 Year
  Sex: Female
  Weight: 102 kg

DRUGS (45)
  1. LORATADINE [Suspect]
     Active Substance: LORATADINE
     Indication: Asthma
     Dosage: UNK
     Route: 065
  2. LORATADINE [Suspect]
     Active Substance: LORATADINE
     Indication: Urticaria chronic
  3. CETIRIZINE [Suspect]
     Active Substance: CETIRIZINE HYDROCHLORIDE
     Indication: Urticaria chronic
     Dosage: UNK
     Route: 065
  4. CETIRIZINE [Suspect]
     Active Substance: CETIRIZINE HYDROCHLORIDE
     Indication: Asthma
     Dosage: UNK
  5. DESLORATADINE [Suspect]
     Active Substance: DESLORATADINE
     Indication: Drug provocation test
     Dosage: UNK
     Route: 048
  6. DESLORATADINE [Suspect]
     Active Substance: DESLORATADINE
     Indication: Asthma
     Dosage: DPT
     Route: 065
  7. DESLORATADINE [Suspect]
     Active Substance: DESLORATADINE
     Indication: Urticaria chronic
  8. DEFLAZACORT [Suspect]
     Active Substance: DEFLAZACORT
     Indication: Asthma
     Dosage: UNK
     Route: 062
  9. DEFLAZACORT [Suspect]
     Active Substance: DEFLAZACORT
     Indication: Urticaria chronic
     Dosage: UNK
  10. DEFLAZACORT [Suspect]
     Active Substance: DEFLAZACORT
     Dosage: UNK
     Route: 065
  11. EBASTINE [Suspect]
     Active Substance: EBASTINE
     Indication: Asthma
     Dosage: DOSAGE FORM: UNSPECIFIED
     Route: 065
  12. EBASTINE [Suspect]
     Active Substance: EBASTINE
     Indication: Urticaria chronic
  13. HYDROXYZINE [Suspect]
     Active Substance: HYDROXYZINE HYDROCHLORIDE
     Indication: Asthma
     Dosage: UNK
     Route: 065
  14. HYDROXYZINE [Suspect]
     Active Substance: HYDROXYZINE HYDROCHLORIDE
     Indication: Urticaria chronic
  15. IBUPROFEN [Suspect]
     Active Substance: IBUPROFEN
     Indication: Asthma
     Dosage: UNK
     Route: 065
  16. IBUPROFEN [Suspect]
     Active Substance: IBUPROFEN
     Indication: Urticaria chronic
  17. IBUPROFEN [Suspect]
     Active Substance: IBUPROFEN
     Indication: Urticaria chronic
     Dosage: DOSAGE FORM: UNSPECIFIED
     Route: 065
  18. IBUPROFEN [Suspect]
     Active Substance: IBUPROFEN
     Indication: Asthma
  19. ACETAMINOPHEN [Suspect]
     Active Substance: ACETAMINOPHEN
     Indication: Asthma
     Dosage: DOSAGE FORM: UNSPECIFIED
     Route: 065
  20. ACETAMINOPHEN [Suspect]
     Active Substance: ACETAMINOPHEN
     Indication: Urticaria chronic
  21. MONTELUKAST [Suspect]
     Active Substance: MONTELUKAST SODIUM
     Indication: Asthma
     Dosage: UNK
     Route: 048
  22. MONTELUKAST [Suspect]
     Active Substance: MONTELUKAST SODIUM
     Indication: Urticaria chronic
     Dosage: UNK
     Route: 048
  23. MONTELUKAST [Suspect]
     Active Substance: MONTELUKAST SODIUM
     Indication: Drug provocation test
  24. ACETAMINOPHEN [Suspect]
     Active Substance: ACETAMINOPHEN
     Indication: Product used for unknown indication
     Dosage: UNK
     Route: 065
  25. LORATADINE [Suspect]
     Active Substance: LORATADINE
     Indication: Asthma
     Dosage: 300 MG, UNK
     Route: 065
  26. LORATADINE [Suspect]
     Active Substance: LORATADINE
     Indication: Urticaria chronic
     Dosage: 150 MG,UNK
     Route: 065
  27. LORATADINE [Suspect]
     Active Substance: LORATADINE
     Indication: Angioedema
     Dosage: UNK
     Route: 062
  28. LORATADINE [Suspect]
     Active Substance: LORATADINE
     Dosage: UNK
     Route: 048
  29. CLEMASTINE FUMARATE [Suspect]
     Active Substance: CLEMASTINE FUMARATE
     Indication: Asthma
     Dosage: UNK
     Route: 016
  30. CLEMASTINE FUMARATE [Suspect]
     Active Substance: CLEMASTINE FUMARATE
     Indication: Urticaria chronic
  31. DIMETHINDENE MALEATE [Suspect]
     Active Substance: DIMETHINDENE MALEATE
     Indication: Product used for unknown indication
     Dosage: UNK
     Route: 065
  32. DEXAMETHASONE SODIUM PHOSPHATE [Suspect]
     Active Substance: DEXAMETHASONE SODIUM PHOSPHATE
     Indication: Asthma
     Dosage: UNK
     Route: 065
  33. DEXAMETHASONE SODIUM PHOSPHATE [Suspect]
     Active Substance: DEXAMETHASONE SODIUM PHOSPHATE
     Indication: Urticaria chronic
  34. FLURBIPROFEN [Suspect]
     Active Substance: FLURBIPROFEN
     Indication: Asthma
     Dosage: DOSAGE FORM: UNSPECIFIED
     Route: 016
  35. FLURBIPROFEN [Suspect]
     Active Substance: FLURBIPROFEN
     Indication: Urticaria chronic
  36. HYDROCORTISONE [Suspect]
     Active Substance: HYDROCORTISONE
     Indication: Urticaria chronic
     Dosage: UNK
     Route: 062
  37. HYDROCORTISONE [Suspect]
     Active Substance: HYDROCORTISONE
     Indication: Asthma
     Dosage: UNK
     Route: 048
  38. HYDROCORTISONE [Suspect]
     Active Substance: HYDROCORTISONE
     Indication: Asthma
     Dosage: UNK
     Route: 065
  39. OMALIZUMAB [Suspect]
     Active Substance: OMALIZUMAB
     Indication: Angioedema
     Dosage: 300 MILLIGRAM, ONCE A DAY
     Route: 065
  40. OMALIZUMAB [Suspect]
     Active Substance: OMALIZUMAB
     Indication: Urticaria chronic
     Dosage: 150 MG, UNK
     Route: 065
  41. OMALIZUMAB [Suspect]
     Active Substance: OMALIZUMAB
     Indication: Asthma
  42. METHYLPREDNISOLONE [Suspect]
     Active Substance: METHYLPREDNISOLONE
     Indication: Asthma
     Dosage: UNKNOWN DOSE
     Route: 062
  43. METHYLPREDNISOLONE [Suspect]
     Active Substance: METHYLPREDNISOLONE
     Indication: Urticaria chronic
     Dosage: UNK
     Route: 065
  44. ZYRTEC [Suspect]
     Active Substance: CETIRIZINE HYDROCHLORIDE
     Indication: Asthma
     Dosage: 150 MILLIGRAM, UNK
     Route: 065
  45. ZYRTEC [Suspect]
     Active Substance: CETIRIZINE HYDROCHLORIDE
     Indication: Urticaria chronic

REACTIONS (11)
  - Drug reaction with eosinophilia and systemic symptoms [Recovered/Resolved]
  - Angioedema [Recovered/Resolved]
  - Allergy test positive [Recovering/Resolving]
  - Urticaria [Recovering/Resolving]
  - Exposure during pregnancy [Recovered/Resolved]
  - Drug hypersensitivity [Recovered/Resolved]
  - Syncope [Unknown]
  - Product use in unapproved indication [Unknown]
  - Off label use [Unknown]
  - Urticaria chronic [Recovering/Resolving]
  - Maternal exposure during pregnancy [Unknown]
